FAERS Safety Report 4420797-4 (Version None)
Quarter: 2004Q3

REPORT INFORMATION
  Report Type: 
  Country: None (occurrence: None)
  Receive Date: 20040809
  Receipt Date: 20040602
  Transmission Date: 20050211
  Serious: No
  Sender: FDA-Public Use
  Company Number: US-GLAXOSMITHKLINE-A0513042A

PATIENT
  Age: 46 Year
  Sex: Male

DRUGS (2)
  1. PAXIL [Suspect]
     Indication: IRRITABLE BOWEL SYNDROME
     Dosage: 30MG PER DAY
     Route: 048
     Dates: start: 20040401, end: 20040604
  2. PRILOSEC [Concomitant]

REACTIONS (6)
  - BLOOD CHOLESTEROL INCREASED [None]
  - DIZZINESS [None]
  - DRUG WITHDRAWAL SYNDROME [None]
  - HEADACHE [None]
  - HYPERHIDROSIS [None]
  - NAUSEA [None]
